FAERS Safety Report 11523063 (Version 1)
Quarter: 2015Q3

REPORT INFORMATION
  Report Type: Spontaneous
  Country: US (occurrence: US)
  Receive Date: 20150918
  Receipt Date: 20150918
  Transmission Date: 20151125
  Serious: Yes (Hospitalization, Other)
  Sender: FDA-Public Use
  Company Number: US-ROCHE-716472

PATIENT
  Age: 51 Year
  Sex: Male
  Weight: 74.4 kg

DRUGS (4)
  1. RIBAVIRIN. [Suspect]
     Active Substance: RIBAVIRIN
     Route: 048
     Dates: start: 20100507, end: 20100913
  2. PEGASYS [Suspect]
     Active Substance: PEGINTERFERON ALFA-2A
     Route: 058
  3. PEGASYS [Suspect]
     Active Substance: PEGINTERFERON ALFA-2A
     Indication: HEPATITIS C
     Route: 058
  4. RIBAVIRIN. [Suspect]
     Active Substance: RIBAVIRIN
     Indication: HEPATITIS C
     Route: 048

REACTIONS (10)
  - Anaemia [Recovering/Resolving]
  - Nausea [Unknown]
  - Weight decreased [Recovering/Resolving]
  - Decreased appetite [Unknown]
  - Pyrexia [Unknown]
  - Dysphonia [Unknown]
  - Rash [Unknown]
  - Cough [Unknown]
  - Thrombocytopenia [Recovering/Resolving]
  - Lethargy [Unknown]

NARRATIVE: CASE EVENT DATE: 20100709
